FAERS Safety Report 7764931-7 (Version None)
Quarter: 2011Q3

REPORT INFORMATION
  Report Type: 
  Country: None (occurrence: None)
  Receive Date: 20110921
  Receipt Date: 20110913
  Transmission Date: 20111222
  Serious: Yes (Life-Threatening)
  Sender: FDA-Public Use
  Company Number: US-ROCHE-794455

PATIENT
  Sex: Female

DRUGS (1)
  1. BONIVA [Suspect]
     Indication: OSTEOPOROSIS
     Dosage: FREQUENCY: QUATERLY
     Route: 042
     Dates: start: 20110727, end: 20110727

REACTIONS (3)
  - LARYNGOSPASM [None]
  - BURNING SENSATION [None]
  - COUGH [None]
